FAERS Safety Report 16485128 (Version 1)
Quarter: 2019Q2

REPORT INFORMATION
  Report Type: Spontaneous
  Country: US (occurrence: US)
  Receive Date: 20190517
  Receipt Date: 20190517
  Transmission Date: 20190711
  Serious: Yes (Death)
  Sender: FDA-Public Use
  Company Number: None

PATIENT
  Age: 73 Year
  Sex: Male

DRUGS (7)
  1. BICALUTAMIDE. [Concomitant]
     Active Substance: BICALUTAMIDE
  2. ABIRATERONE. [Suspect]
     Active Substance: ABIRATERONE ACETATE
     Indication: PROSTATE CANCER
     Route: 048
  3. VITAMIN D3 [Concomitant]
     Active Substance: CHOLECALCIFEROL
  4. CALCIUM [Concomitant]
     Active Substance: CALCIUM
  5. PREDNISONE. [Concomitant]
     Active Substance: PREDNISONE
  6. LEUPROLIDE [Concomitant]
     Active Substance: LEUPROLIDE
  7. ASPIRIN. [Concomitant]
     Active Substance: ASPIRIN

REACTIONS (1)
  - Therapy cessation [None]
